FAERS Safety Report 6064392-2 (Version None)
Quarter: 2009Q1

REPORT INFORMATION
  Report Type: 
  Country: None (occurrence: None)
  Receive Date: 20090203
  Receipt Date: 20090203
  Transmission Date: 20090719
  Serious: No
  Sender: FDA-Public Use
  Company Number: None

PATIENT
  Sex: Male
  Weight: 90 kg

DRUGS (17)
  1. NIASPAN [Suspect]
     Dosage: 1000MG TABLET SA BID ORAL
     Route: 048
     Dates: start: 20081119, end: 20090202
  2. ALLEGRA [Concomitant]
  3. BACTROBAN [Concomitant]
  4. CARAC [Concomitant]
  5. CLOBETASOL PROPIONATE [Concomitant]
  6. DESOWEN CREAM [Concomitant]
  7. HYDROCHLOROTHIAZIDE [Concomitant]
  8. K-Y STERILE LUBRICATING JELLY [Concomitant]
  9. KETOCONAZOLE [Concomitant]
  10. LIVITRA [Concomitant]
  11. LIPITOR [Concomitant]
  12. LISINOPRIL [Concomitant]
  13. LORAZEPAM [Concomitant]
  14. LOTRISONE [Concomitant]
  15. METFORMIN EXTENDED RELEASE [Concomitant]
  16. RANITIDINE HCL [Concomitant]
  17. TRICOR [Concomitant]

REACTIONS (1)
  - HYPERGLYCAEMIA [None]
